FAERS Safety Report 18658904 (Version 1)
Quarter: 2020Q4

REPORT INFORMATION
  Report Type: Spontaneous
  Country: US (occurrence: US)
  Receive Date: 20201224
  Receipt Date: 20201224
  Transmission Date: 20210114
  Serious: Yes (Death, Hospitalization, Other)
  Sender: FDA-Public Use
  Company Number: US-HIKMA PHARMACEUTICALS USA INC.-US-H14001-20-05740

PATIENT
  Age: 70 Year
  Sex: Female

DRUGS (1)
  1. IRINOTECAN [Suspect]
     Active Substance: IRINOTECAN
     Indication: BREAST CANCER METASTATIC
     Dosage: UNKNOWN
     Route: 065
     Dates: start: 202001, end: 202001

REACTIONS (5)
  - Asthenia [Unknown]
  - Pyrexia [Unknown]
  - Febrile neutropenia [Unknown]
  - Sepsis [Fatal]
  - Chills [Unknown]
